FAERS Safety Report 12990762 (Version 1)
Quarter: 2016Q4

REPORT INFORMATION
  Report Type: Spontaneous
  Country: US (occurrence: US)
  Receive Date: 20161201
  Receipt Date: 20161201
  Transmission Date: 20170207
  Serious: Yes (Life-Threatening, Hospitalization, Disabling)
  Sender: FDA-Public Use
  Company Number: None

PATIENT
  Age: 39 Year
  Sex: Male
  Weight: 90.72 kg

DRUGS (12)
  1. OXYCODONE [Concomitant]
     Active Substance: OXYCODONE
  2. VITAMIN D [Concomitant]
     Active Substance: CHOLECALCIFEROL
  3. CEFAZOLIN [Concomitant]
     Active Substance: CEFAZOLIN
  4. BACLOFEN. [Concomitant]
     Active Substance: BACLOFEN
  5. ZINC [Concomitant]
     Active Substance: ZINC\ZINC CHLORIDE
  6. MULTI-VITAMINS [Concomitant]
  7. GABAPENTIN. [Concomitant]
     Active Substance: GABAPENTIN
  8. DIAZEPAM. [Concomitant]
     Active Substance: DIAZEPAM
  9. SERMORELIN ACETATE/GHRP INJECTABLE KIT [Suspect]
     Active Substance: GHRP-6\PRALMORELIN\SERMORELIN ACETATE
     Indication: PRODUCT USED FOR UNKNOWN INDICATION
     Dates: start: 201603, end: 20161018
  10. VANCOMYHCIN [Concomitant]
  11. DULOXETINE. [Concomitant]
     Active Substance: DULOXETINE
  12. DHEA [Concomitant]
     Active Substance: PRASTERONE

REACTIONS (3)
  - Pain [None]
  - Surgical procedure repeated [None]
  - Infection [None]

NARRATIVE: CASE EVENT DATE: 20160909
